FAERS Safety Report 11589991 (Version 1)
Quarter: 2015Q4

REPORT INFORMATION
  Report Type: Spontaneous
  Country: US (occurrence: US)
  Receive Date: 20151002
  Receipt Date: 20151002
  Transmission Date: 20160304
  Serious: Yes (Life-Threatening, Hospitalization)
  Sender: FDA-Public Use
  Company Number: US-PFIZER INC-2015315523

PATIENT
  Age: 3 Year
  Sex: Male

DRUGS (1)
  1. BENZOCAINE. [Suspect]
     Active Substance: BENZOCAINE
     Dosage: UNK
     Route: 048

REACTIONS (1)
  - Methaemoglobinaemia [Unknown]
